FAERS Safety Report 9821221 (Version 2)
Quarter: 2014Q1

REPORT INFORMATION
  Report Type: Spontaneous
  Country: FR (occurrence: None)
  Receive Date: 20140114
  Receipt Date: 20140327
  Transmission Date: 20141002
  Serious: Yes (Life-Threatening)
  Sender: FDA-Public Use
  Company Number: 2014CP000002

PATIENT
  Age: 65 Year
  Sex: Male

DRUGS (4)
  1. PERFALGAN [Suspect]
     Indication: PREMEDICATION
     Route: 042
     Dates: start: 20131113, end: 20131113
  2. ERBITUX (CETUXIMAB) [Suspect]
     Indication: COLORECTAL CANCER METASTATIC
     Dosage: 960MG; CYCLICAL, IV
     Route: 042
     Dates: start: 20131113, end: 20131113
  3. POLARAMINE (DEXCHLORPHENIRAMINE MALEATE) [Suspect]
     Indication: PREMEDICATION
     Route: 042
     Dates: start: 20131113, end: 20131113
  4. SOLU-MEDROL (METHYLPREDNISOLONE SODIUM SUCCINATE) [Suspect]
     Indication: PREMEDICATION
     Route: 042
     Dates: start: 20131113, end: 20131113

REACTIONS (3)
  - Type I hypersensitivity [None]
  - Bronchospasm [None]
  - Cardio-respiratory arrest [None]
